FAERS Safety Report 21024923 (Version 1)
Quarter: 2022Q2

REPORT INFORMATION
  Report Type: Spontaneous
  Country: SE (occurrence: SE)
  Receive Date: 20220629
  Receipt Date: 20220629
  Transmission Date: 20220721
  Serious: Yes (Other)
  Sender: FDA-Public Use
  Company Number: None

PATIENT
  Age: 83 Year
  Sex: Female

DRUGS (6)
  1. MEMANTINE [Suspect]
     Active Substance: MEMANTINE
     Indication: Neuropsychiatric symptoms
     Dosage: 1 DOSAGE FORMS DAILY; FORM STRENGTH : 5 MG + 10 MG + 15 MG + 20 MG, 1 TABLET DAILY, ESCALATION SCHED
     Route: 048
     Dates: start: 20220105, end: 20220215
  2. PARACETAMOL NET [Concomitant]
     Indication: Product used for unknown indication
     Dosage: 1000 MILLIGRAM DAILY; 500 MG 2 TABLETS TWICE DAILY, FORM STRENGTH : 500 MG
     Route: 048
  3. MALVITONA [Concomitant]
     Indication: Product used for unknown indication
     Dosage: 60 ML DAILY; 30 ML TWICE DAILY
  4. MIRTAZAPINE [Concomitant]
     Active Substance: MIRTAZAPINE
     Indication: Product used for unknown indication
     Dosage: 15 MILLIGRAM DAILY; 15 MG 1 TABLET AT 8 P.M , FORM STRENGTH : 15 MG
     Route: 048
  5. Felodipin Teva [Concomitant]
     Indication: Product used for unknown indication
     Dosage: 5 MILLIGRAM DAILY; 5 MG 1 TABLET DAILY, FORM STRENGTH : 5 MG
     Route: 048
  6. Rivastigmin STADA [Concomitant]
     Indication: Product used for unknown indication
     Dosage: 1 DOSAGE FORMS DAILY; STRENGTH : 9.5 MG / 24 HOURS 1 PATCH DAILY
     Route: 061

REACTIONS (2)
  - Rash vesicular [Not Recovered/Not Resolved]
  - Pruritus [Unknown]

NARRATIVE: CASE EVENT DATE: 20220101
